FAERS Safety Report 15117779 (Version 3)
Quarter: 2018Q3

REPORT INFORMATION
  Report Type: Report from Study
  Country: US (occurrence: US)
  Receive Date: 20180707
  Receipt Date: 20180720
  Transmission Date: 20181010
  Serious: No
  Sender: FDA-Public Use
  Company Number: US-AMGEN-USASL2018090401

PATIENT
  Age: 14 Year
  Sex: Female

DRUGS (2)
  1. ENBREL [Suspect]
     Active Substance: ETANERCEPT
     Indication: JUVENILE IDIOPATHIC ARTHRITIS
     Dosage: UNK
     Route: 065
  2. ENBREL [Suspect]
     Active Substance: ETANERCEPT
     Dosage: 50 MG, QWK
     Route: 065

REACTIONS (9)
  - Wrong technique in product usage process [Unknown]
  - Pain [Unknown]
  - Injection site erythema [Unknown]
  - Fear of injection [Unknown]
  - Refusal of treatment by patient [Unknown]
  - Mobility decreased [Unknown]
  - Injection site pain [Unknown]
  - Accidental exposure to product [Unknown]
  - Underdose [Unknown]

NARRATIVE: CASE EVENT DATE: 20180711
